FAERS Safety Report 9865637 (Version 2)
Quarter: 2014Q1

REPORT INFORMATION
  Report Type: Spontaneous
  Country: US (occurrence: US)
  Receive Date: 20140203
  Receipt Date: 20140203
  Transmission Date: 20141002
  Serious: No
  Sender: FDA-Public Use
  Company Number: US-ALLERGAN-1306151US

PATIENT
  Age: 76 Year
  Sex: Female

DRUGS (4)
  1. RESTASIS [Suspect]
     Indication: DRY EYE
     Dosage: 2 GTT, UNK
     Route: 047
     Dates: start: 20130326
  2. BLOOD PRESSURE MEDICINES NOS [Concomitant]
     Indication: HYPERTENSION
     Dosage: UNK
  3. CHOLESTEROL MEDICINE NOS [Concomitant]
     Indication: BLOOD CHOLESTEROL INCREASED
     Dosage: UNK
  4. LEVOBUNOLOL                        /00892902/ [Concomitant]
     Indication: GLAUCOMA
     Dosage: 2 GTT, QAM
     Route: 047

REACTIONS (4)
  - Eye infection [Not Recovered/Not Resolved]
  - Inappropriate schedule of drug administration [Unknown]
  - Vision blurred [Not Recovered/Not Resolved]
  - Foreign body sensation in eyes [Not Recovered/Not Resolved]
